FAERS Safety Report 4512234-6 (Version None)
Quarter: 2004Q4

REPORT INFORMATION
  Report Type: 
  Country: None (occurrence: None)
  Receive Date: 20041123
  Receipt Date: 20041109
  Transmission Date: 20050328
  Serious: Yes (Other)
  Sender: FDA-Public Use
  Company Number: AT-2004-035209

PATIENT
  Age: 23 Year
  Sex: Female

DRUGS (1)
  1. YASMIN [Suspect]
     Dosage: 1 TAB(S), 24/28 D, ORAL
     Route: 048

REACTIONS (2)
  - CERVICAL DYSPLASIA [None]
  - SMEAR CERVIX ABNORMAL [None]
